FAERS Safety Report 16684481 (Version 1)
Quarter: 2019Q3

REPORT INFORMATION
  Report Type: Spontaneous
  Country: US (occurrence: US)
  Receive Date: 20190808
  Receipt Date: 20190808
  Transmission Date: 20191004
  Serious: No
  Sender: FDA-Public Use
  Company Number: US-ASTRAZENECA-2019SF01272

PATIENT
  Sex: Female

DRUGS (2)
  1. BYDUREON BCISE [Suspect]
     Active Substance: EXENATIDE
     Dosage: UNKNOWN
     Route: 058
  2. BYETTA [Suspect]
     Active Substance: EXENATIDE
     Route: 058
     Dates: start: 201906

REACTIONS (7)
  - Disability [Unknown]
  - Arthritis [Unknown]
  - Back pain [Unknown]
  - Injection site haemorrhage [Unknown]
  - Device issue [Unknown]
  - Peripheral swelling [Unknown]
  - Injection site extravasation [Unknown]
